FAERS Safety Report 13414449 (Version 2)
Quarter: 2017Q2

REPORT INFORMATION
  Report Type: Spontaneous
  Country: US (occurrence: US)
  Receive Date: 20170406
  Receipt Date: 20170526
  Transmission Date: 20170830
  Serious: Yes (Other)
  Sender: FDA-Public Use
  Company Number: US-WEST-WARD PHARMACEUTICALS CORP.-US-H14001-17-00637

PATIENT
  Sex: Male

DRUGS (4)
  1. DEXAMETHASONE. [Suspect]
     Active Substance: DEXAMETHASONE
     Indication: CHEMOTHERAPY
     Route: 048
     Dates: start: 2016, end: 201704
  2. FLUDROCORTISONE [Suspect]
     Active Substance: FLUDROCORTISONE
     Indication: ORTHOSTATIC HYPOTENSION
     Route: 048
     Dates: start: 2010
  3. FLUDROCORTISONE [Suspect]
     Active Substance: FLUDROCORTISONE
     Route: 048
     Dates: start: 2016
  4. FLUDROCORTISONE [Suspect]
     Active Substance: FLUDROCORTISONE
     Route: 048

REACTIONS (5)
  - Extrasystoles [Unknown]
  - Weight decreased [Not Recovered/Not Resolved]
  - Blood potassium decreased [Unknown]
  - Oedema peripheral [Not Recovered/Not Resolved]
  - Swelling face [Not Recovered/Not Resolved]

NARRATIVE: CASE EVENT DATE: 2011
